FAERS Safety Report 5590438-1 (Version None)
Quarter: 2008Q1

REPORT INFORMATION
  Report Type: 
  Country: None (occurrence: None)
  Receive Date: 20080114
  Receipt Date: 20080110
  Transmission Date: 20080703
  Serious: Yes (Other)
  Sender: FDA-Public Use
  Company Number: NG-BOEHRINGER INGELHEIM PHARMACEUTICALS, INC.-2008-DE-00167GD

PATIENT

DRUGS (2)
  1. NEVIRAPINE [Suspect]
     Indication: HUMAN IMMUNODEFICIENCY VIRUS TRANSMISSION
     Dosage: 2 MG/KG WITHIN 72 H OF BIRTH
  2. NEVIRAPINE [Suspect]
     Indication: PROPHYLAXIS
     Route: 064

REACTIONS (2)
  - DRUG EXPOSURE DURING PREGNANCY [None]
  - HIV TEST POSITIVE [None]
